FAERS Safety Report 18733114 (Version 3)
Quarter: 2021Q2

REPORT INFORMATION
  Report Type: Spontaneous
  Country: JP (occurrence: JP)
  Receive Date: 20210112
  Receipt Date: 20210409
  Transmission Date: 20210717
  Serious: Yes (Other)
  Sender: FDA-Public Use
  Company Number: JP-BRISTOL-MYERS SQUIBB COMPANY-BMS-2021-000628

PATIENT
  Age: 64 Year
  Sex: Female

DRUGS (1)
  1. ORENCIA [Suspect]
     Active Substance: ABATACEPT
     Indication: RHEUMATIC DISORDER
     Dosage: UNAVAILABLE
     Route: 065

REACTIONS (14)
  - Body temperature abnormal [Unknown]
  - Headache [Unknown]
  - Arthralgia [Unknown]
  - Dizziness [Unknown]
  - Intentional product use issue [Unknown]
  - Productive cough [Unknown]
  - Malaise [Unknown]
  - Eye pain [Unknown]
  - Drug ineffective [Unknown]
  - Sputum retention [Unknown]
  - Asthenia [Unknown]
  - Chest discomfort [Unknown]
  - Immune system disorder [Unknown]
  - Atypical mycobacterial infection [Unknown]

NARRATIVE: CASE EVENT DATE: 2018
